FAERS Safety Report 23317321 (Version 1)
Quarter: 2023Q4

REPORT INFORMATION
  Report Type: Spontaneous
  Country: US (occurrence: None)
  Receive Date: 20231219
  Receipt Date: 20231219
  Transmission Date: 20240110
  Serious: No
  Sender: FDA-Public Use
  Company Number: US-ROCHE-3384883

PATIENT
  Age: 31 Year
  Sex: Male

DRUGS (1)
  1. HEMLIBRA [Suspect]
     Active Substance: EMICIZUMAB-KXWH
     Indication: Factor VIII deficiency
     Dosage: 105MG/0.7ML
     Route: 058
     Dates: start: 202305

REACTIONS (4)
  - Haemorrhage [Recovered/Resolved]
  - Fall [Unknown]
  - Skin abrasion [Unknown]
  - Arthralgia [Unknown]

NARRATIVE: CASE EVENT DATE: 20230602
